FAERS Safety Report 9326521 (Version 1)
Quarter: 2013Q2

REPORT INFORMATION
  Report Type: Spontaneous
  Country: US (occurrence: None)
  Receive Date: 20130603
  Receipt Date: 20130603
  Transmission Date: 20140414
  Serious: Yes (Hospitalization)
  Sender: FDA-Public Use
  Company Number: None

PATIENT
  Age: 53 Year
  Sex: Male
  Weight: 68.04 kg

DRUGS (2)
  1. CEFTRIAXONE FOR INJECTION (+) DEXTROSE INJECTION [Suspect]
     Route: 030
     Dates: start: 20121228, end: 20121228
  2. LIDOCAINE HCL [Suspect]
     Route: 030
     Dates: start: 20121228, end: 20121228

REACTIONS (2)
  - Musculoskeletal pain [None]
  - Osteomyelitis [None]
